FAERS Safety Report 15877088 (Version 1)
Quarter: 2019Q1

REPORT INFORMATION
  Report Type: Report from Study
  Country: US (occurrence: US)
  Receive Date: 20190128
  Receipt Date: 20190128
  Transmission Date: 20190417
  Serious: Yes (Hospitalization, Other)
  Sender: FDA-Public Use
  Company Number: US-SAKK-2019SA012670AA

PATIENT
  Age: 77 Year
  Sex: Female

DRUGS (1)
  1. INSULIN GLARGINE [Suspect]
     Active Substance: INSULIN GLARGINE
     Indication: DIABETES MELLITUS
     Dosage: 41 U, BID
     Route: 058

REACTIONS (10)
  - Visual impairment [Not Recovered/Not Resolved]
  - Tissue injury [Unknown]
  - Atrial tachycardia [Not Recovered/Not Resolved]
  - Product use issue [Unknown]
  - Lung neoplasm malignant [Unknown]
  - Heart rate increased [Not Recovered/Not Resolved]
  - Pneumonia [Not Recovered/Not Resolved]
  - Eye haemorrhage [Unknown]
  - Endometrial cancer [Recovered/Resolved]
  - Ureteric cancer recurrent [Unknown]

NARRATIVE: CASE EVENT DATE: 2014
